FAERS Safety Report 14089692 (Version 3)
Quarter: 2020Q2

REPORT INFORMATION
  Report Type: Spontaneous
  Country: US (occurrence: US)
  Receive Date: 20171014
  Receipt Date: 20200423
  Transmission Date: 20200713
  Serious: No
  Sender: FDA-Public Use
  Company Number: US-SA-2017SA168043

PATIENT
  Age: 51 Year
  Sex: Female

DRUGS (3)
  1. AMPYRA [Concomitant]
     Active Substance: DALFAMPRIDINE
     Route: 065
  2. AUBAGIO [Suspect]
     Active Substance: TERIFLUNOMIDE
     Dosage: 14 MG,QD
     Route: 048
     Dates: start: 20190807
  3. AUBAGIO [Suspect]
     Active Substance: TERIFLUNOMIDE
     Indication: MULTIPLE SCLEROSIS
     Dosage: 14 MG,QD
     Route: 048

REACTIONS (9)
  - Pain [Not Recovered/Not Resolved]
  - Mobility decreased [Not Recovered/Not Resolved]
  - Disturbance in attention [Unknown]
  - Insomnia [Unknown]
  - Condition aggravated [Unknown]
  - Balance disorder [Unknown]
  - Clumsiness [Recovered/Resolved]
  - Fatigue [Unknown]
  - Crying [Unknown]

NARRATIVE: CASE EVENT DATE: 201707
